FAERS Safety Report 7780757-2 (Version None)
Quarter: 2011Q3

REPORT INFORMATION
  Report Type: 
  Country: None (occurrence: None)
  Receive Date: 20110927
  Receipt Date: 20110916
  Transmission Date: 20111222
  Serious: Yes (Hospitalization)
  Sender: FDA-Public Use
  Company Number: FR-SANOFI-AVENTIS-2011SA028146

PATIENT
  Age: 70 Year
  Sex: Male

DRUGS (9)
  1. LASIX [Suspect]
     Route: 048
     Dates: start: 20101014, end: 20110117
  2. BACTRIM [Suspect]
     Route: 042
     Dates: start: 20101029, end: 20101106
  3. ANTIBIOTICS [Suspect]
     Route: 048
     Dates: start: 20101115, end: 20101126
  4. BUMETANIDE [Suspect]
     Route: 042
     Dates: start: 20101030, end: 20101103
  5. ORGARAN [Suspect]
     Route: 058
     Dates: start: 20101025, end: 20110126
  6. ALDOMET [Suspect]
     Route: 048
     Dates: start: 20101115, end: 20110110
  7. AMOXICILLIN AND CLAVULANATE POTASSIUM [Suspect]
     Route: 042
     Dates: start: 20101029, end: 20101112
  8. ALPRAZOLAM [Suspect]
     Route: 048
     Dates: start: 20101115, end: 20101206
  9. EUPRESSYL [Suspect]
     Route: 042
     Dates: start: 20101014, end: 20101121

REACTIONS (1)
  - DRUG RASH WITH EOSINOPHILIA AND SYSTEMIC SYMPTOMS [None]
